FAERS Safety Report 5311803-3 (Version None)
Quarter: 2007Q2

REPORT INFORMATION
  Report Type: 
  Country: None (occurrence: None)
  Receive Date: 20070430
  Receipt Date: 20060213
  Transmission Date: 20071010
  Serious: No
  Sender: FDA-Public Use
  Company Number: 2006UW02352

PATIENT
  Age: 60 Year
  Sex: Male
  Weight: 86.2 kg

DRUGS (2)
  1. NEXIUM [Suspect]
     Indication: GASTROOESOPHAGEAL REFLUX DISEASE
     Route: 048
     Dates: start: 20030201
  2. NEXIUM [Suspect]
     Indication: STOMATITIS
     Route: 048
     Dates: start: 20030201

REACTIONS (3)
  - DRY MOUTH [None]
  - TONGUE BLISTERING [None]
  - TONGUE COATED [None]
